FAERS Safety Report 7502036-0 (Version None)
Quarter: 2011Q2

REPORT INFORMATION
  Report Type: 
  Country: None (occurrence: None)
  Receive Date: 20110523
  Receipt Date: 20110523
  Transmission Date: 20111010
  Serious: No
  Sender: FDA-Public Use
  Company Number: None

PATIENT
  Sex: Female
  Weight: 60.1 kg

DRUGS (6)
  1. REMICADE [Suspect]
     Indication: PSORIATIC ARTHROPATHY
     Dosage: 300MG EVERY 4WK X 2 IV
     Route: 042
     Dates: start: 20110421
  2. REMICADE [Suspect]
     Indication: JUVENILE ARTHRITIS
     Dosage: 300MG EVERY 4WK X 2 IV
     Route: 042
     Dates: start: 20110421
  3. REMICADE [Suspect]
     Indication: PSORIATIC ARTHROPATHY
     Dosage: 300MG EVERY 4WK X 2 IV
     Route: 042
     Dates: start: 20110519
  4. REMICADE [Suspect]
     Indication: JUVENILE ARTHRITIS
     Dosage: 300MG EVERY 4WK X 2 IV
     Route: 042
     Dates: start: 20110519
  5. REMICADE [Suspect]
     Indication: PSORIATIC ARTHROPATHY
     Dosage: 300MG EVERY 4WK X 2 IV
     Route: 042
     Dates: start: 20110407
  6. REMICADE [Suspect]
     Indication: JUVENILE ARTHRITIS
     Dosage: 300MG EVERY 4WK X 2 IV
     Route: 042
     Dates: start: 20110407

REACTIONS (6)
  - INFUSION RELATED REACTION [None]
  - HEADACHE [None]
  - URTICARIA [None]
  - CHEST PAIN [None]
  - DYSPNOEA [None]
  - PHARYNGEAL DISORDER [None]
